FAERS Safety Report 9426694 (Version 1)
Quarter: 2013Q3

REPORT INFORMATION
  Report Type: Spontaneous
  Country: US (occurrence: US)
  Receive Date: 20130730
  Receipt Date: 20130730
  Transmission Date: 20140515
  Serious: No
  Sender: FDA-Public Use
  Company Number: US-SANOFI-AVENTIS-2012SA059283

PATIENT
  Sex: Male

DRUGS (3)
  1. ZOLPIDEM TARTRATE [Suspect]
     Route: 048
  2. HYDROCODONE BITARTRATE/PARACETAMOL [Interacting]
     Indication: DIABETIC NEUROPATHY
     Route: 065
  3. PERCOCET [Interacting]
     Indication: TOOTH EXTRACTION
     Route: 065
     Dates: start: 20120807

REACTIONS (2)
  - Insomnia [Recovered/Resolved]
  - Drug interaction [Unknown]
